FAERS Safety Report 21793087 (Version 4)
Quarter: 2023Q1

REPORT INFORMATION
  Report Type: Spontaneous
  Country: US (occurrence: US)
  Receive Date: 20221229
  Receipt Date: 20230126
  Transmission Date: 20230418
  Serious: No
  Sender: FDA-Public Use
  Company Number: US-PFIZER INC-PV202200121123

PATIENT
  Age: 15 Year
  Sex: Male
  Weight: 47.619 kg

DRUGS (1)
  1. GENOTROPIN [Suspect]
     Active Substance: SOMATROPIN
     Dosage: UNK
     Dates: start: 20230104

REACTIONS (3)
  - Incorrect dose administered by device [Unknown]
  - Underdose [Unknown]
  - Device mechanical issue [Unknown]
